FAERS Safety Report 24714036 (Version 4)
Quarter: 2025Q1

REPORT INFORMATION
  Report Type: Spontaneous
  Country: AR (occurrence: AR)
  Receive Date: 20241209
  Receipt Date: 20250325
  Transmission Date: 20250408
  Serious: Yes (Other)
  Sender: PFIZER
  Company Number: AR-PFIZER INC-202400276364

PATIENT
  Age: 7 Year
  Sex: Female

DRUGS (1)
  1. GENOTROPIN [Suspect]
     Active Substance: SOMATROPIN
     Indication: Prader-Willi syndrome
     Dosage: 0.5 MG, DAILY
     Dates: start: 20231023, end: 20241020

REACTIONS (3)
  - Drug ineffective [Unknown]
  - Device mechanical issue [Unknown]
  - Patient-device incompatibility [Unknown]
